FAERS Safety Report 20101109 (Version 1)
Quarter: 2021Q4

REPORT INFORMATION
  Report Type: Spontaneous
  Country: CN (occurrence: CN)
  Receive Date: 20211123
  Receipt Date: 20211123
  Transmission Date: 20220303
  Serious: Yes (Other)
  Sender: FDA-Public Use
  Company Number: CN-BAXTER-2021BAX036417

PATIENT
  Age: 62 Year
  Sex: Female
  Weight: 75 kg

DRUGS (18)
  1. CYCLOPHOSPHAMIDE [Suspect]
     Active Substance: CYCLOPHOSPHAMIDE
     Indication: Breast cancer female
     Dosage: 1-3 CYCLE OF CHEMOTHERAPY, DILUTED WITH NS
     Route: 042
  2. CYCLOPHOSPHAMIDE [Suspect]
     Active Substance: CYCLOPHOSPHAMIDE
     Dosage: CYCLOPHOSPHAMIDE (ENDOXAN CTX) 800 MG + NS 40 ML, 4TH CYCLE OF CHEMOTHERAPY
     Route: 042
     Dates: start: 20210922, end: 20210922
  3. CYCLOPHOSPHAMIDE [Suspect]
     Active Substance: CYCLOPHOSPHAMIDE
     Dosage: DOSE REINTRODUCED, DILUTED WITH NS
     Route: 042
  4. SODIUM CHLORIDE [Suspect]
     Active Substance: SODIUM CHLORIDE
     Indication: Medication dilution
     Dosage: CYCLOPHOSPHAMIDE (ENDOXAN CTX) 800 MG + NS 40 ML
     Route: 042
     Dates: start: 20210922, end: 20210922
  5. SODIUM CHLORIDE [Suspect]
     Active Substance: SODIUM CHLORIDE
     Dosage: EPIRUBICIN HYDROCHLORIDE (AIDASHENG) 115 MG + NS 100 ML
     Route: 041
     Dates: start: 20210922, end: 20210922
  6. SODIUM CHLORIDE [Suspect]
     Active Substance: SODIUM CHLORIDE
     Dosage: DOCETAXEL INJECTION (AISU) 115 MG + NS 100 ML..
     Route: 041
     Dates: start: 20210922, end: 20210922
  7. SODIUM CHLORIDE [Suspect]
     Active Substance: SODIUM CHLORIDE
     Dosage: DOSE REINTRODUCED WITH ENDOXAN
     Route: 042
  8. SODIUM CHLORIDE [Suspect]
     Active Substance: SODIUM CHLORIDE
     Dosage: DOSE REINTRODUCED WITH AIDASHENG
     Route: 041
  9. SODIUM CHLORIDE [Suspect]
     Active Substance: SODIUM CHLORIDE
     Dosage: DOSE REINTRODUCED WITH AISU
     Route: 041
  10. SODIUM CHLORIDE [Suspect]
     Active Substance: SODIUM CHLORIDE
     Dosage: !-3 CYCLES WITH ENDOXAN
     Route: 042
  11. SODIUM CHLORIDE [Suspect]
     Active Substance: SODIUM CHLORIDE
     Dosage: !-3 CYCLES WITH AISU
     Route: 041
  12. SODIUM CHLORIDE [Suspect]
     Active Substance: SODIUM CHLORIDE
     Dosage: !-3 CYCLES WITH AIDASHENG
     Route: 041
  13. EPIRUBICIN HYDROCHLORIDE [Suspect]
     Active Substance: EPIRUBICIN HYDROCHLORIDE
     Indication: Breast cancer female
     Dosage: 1-3 CYCLE OF CHEMOTHERAPY, DILUTED WITH NS
     Route: 041
  14. EPIRUBICIN HYDROCHLORIDE [Suspect]
     Active Substance: EPIRUBICIN HYDROCHLORIDE
     Dosage: EPIRUBICIN HYDROCHLORIDE (AIDASHENG) 115 MG + NS 100 ML, 4TH CYCLE OF CHEMOTHERAPY
     Route: 041
     Dates: start: 20210922, end: 20210922
  15. EPIRUBICIN HYDROCHLORIDE [Suspect]
     Active Substance: EPIRUBICIN HYDROCHLORIDE
     Dosage: DOSE REINTRODUCED, DILUTED WITH NS
     Route: 041
  16. DOCETAXEL [Suspect]
     Active Substance: DOCETAXEL
     Indication: Breast cancer female
     Dosage: 1-3 CYCLE OF CHEMOTHERAPY, DILUTED WITH NS
     Route: 041
  17. DOCETAXEL [Suspect]
     Active Substance: DOCETAXEL
     Dosage: DOCETAXEL INJECTION (AISU) 115 MG + NS 100 ML.250ML, 4TH CYCLE OF CHEMOTHERAPY
     Route: 041
     Dates: start: 20210922, end: 20210922
  18. DOCETAXEL [Suspect]
     Active Substance: DOCETAXEL
     Dosage: DOSE REINTRODUCED, DILUTED WITH NS
     Route: 041

REACTIONS (2)
  - White blood cell count decreased [Recovered/Resolved]
  - Agranulocytosis [Recovered/Resolved]

NARRATIVE: CASE EVENT DATE: 20210929
